FAERS Safety Report 5091794-3 (Version None)
Quarter: 2006Q3

REPORT INFORMATION
  Report Type: 
  Country: None (occurrence: None)
  Receive Date: 20060829
  Receipt Date: 20060530
  Transmission Date: 20061208
  Serious: No
  Sender: FDA-Public Use
  Company Number: US-BRISTOL-MYERS SQUIBB COMPANY-13393939

PATIENT
  Age: 68 Year
  Sex: Male

DRUGS (4)
  1. ERBITUX [Suspect]
     Indication: RECTAL CANCER METASTATIC
     Dosage: START DATE: FEB-2006 (TOTAL OF 9 DOSES). GIVEN ON DAY 1 + 8 EVERY 21 DAYS.
     Route: 042
     Dates: start: 20060101, end: 20060101
  2. IRINOTECAN HCL [Concomitant]
     Dosage: GIVEN ON DAYS 1 ND 8 EVERY 21 DAYS.
  3. DEXAMETHASONE [Concomitant]
     Indication: PREMEDICATION
     Route: 042
     Dates: start: 20060101, end: 20060101
  4. BENADRYL [Concomitant]
     Indication: PREMEDICATION
     Route: 042
     Dates: start: 20060101, end: 20060101

REACTIONS (1)
  - CHRONIC OBSTRUCTIVE PULMONARY DISEASE [None]
